FAERS Safety Report 10153715 (Version 1)
Quarter: 2014Q2

REPORT INFORMATION
  Report Type: Report from Study
  Country: CA (occurrence: CA)
  Receive Date: 20140506
  Receipt Date: 20140506
  Transmission Date: 20141212
  Serious: Yes (Hospitalization)
  Sender: FDA-Public Use
  Company Number: CA-UCBSA-119864

PATIENT
  Age: 71 Year
  Sex: Female
  Weight: 99.8 kg

DRUGS (2)
  1. CIMZIA [Suspect]
     Indication: RHEUMATOID ARTHRITIS
     Route: 058
     Dates: start: 20130718, end: 201404
  2. CIMZIA [Suspect]
     Indication: RHEUMATOID ARTHRITIS
     Dosage: WKS 0-2-4
     Route: 058
     Dates: start: 20130606, end: 20130704

REACTIONS (1)
  - Pneumonia [Recovered/Resolved]
